FAERS Safety Report 4515235-7 (Version None)
Quarter: 2004Q4

REPORT INFORMATION
  Report Type: 
  Country: None (occurrence: None)
  Receive Date: 20041130
  Receipt Date: 20041130
  Transmission Date: 20050328
  Serious: Yes (Other)
  Sender: FDA-Public Use
  Company Number: None

PATIENT
  Sex: Female
  Weight: 48.9885 kg

DRUGS (2)
  1. LEXAPRO [Suspect]
     Indication: DEPRESSION
     Dosage: 10 MG PO DAILY
     Route: 048
     Dates: start: 20040503, end: 20041010
  2. LEXAPRO [Suspect]
     Indication: SOCIAL PHOBIA
     Dosage: 10 MG PO DAILY
     Route: 048
     Dates: start: 20040503, end: 20041010

REACTIONS (1)
  - PARAESTHESIA [None]
